FAERS Safety Report 4325359-5 (Version None)
Quarter: 2004Q1

REPORT INFORMATION
  Report Type: 
  Country: None (occurrence: None)
  Receive Date: 20040324
  Receipt Date: 20040305
  Transmission Date: 20041129
  Serious: Yes (Life-Threatening, Hospitalization)
  Sender: FDA-Public Use
  Company Number: A0381779A

PATIENT
  Age: 51 Year
  Sex: Male
  Weight: 72.8477 kg

DRUGS (9)
  1. ZIAGEN [Suspect]
     Indication: HIV INFECTION
     Dosage: 300 MG SINGLE DOSE ORAL
     Route: 048
     Dates: start: 20020924, end: 20020924
  2. DIDANOSINE [Concomitant]
  3. TENOFOVIR [Concomitant]
  4. KALETRA [Concomitant]
  5. HALOPERIDOL [Concomitant]
  6. ACYCLOVIR [Concomitant]
  7. CO-TRIMOXAZOLE [Concomitant]
  8. FLUTICASONE PROPIONATE [Concomitant]
  9. PROCYCLIDINE HCL [Concomitant]

REACTIONS (10)
  - ANAPHYLACTIC SHOCK [None]
  - BODY TEMPERATURE INCREASED [None]
  - DIARRHOEA [None]
  - GENERAL PHYSICAL HEALTH DETERIORATION [None]
  - HAEMOGLOBIN DECREASED [None]
  - LOSS OF CONSCIOUSNESS [None]
  - NEUTROPHILIA [None]
  - SEPTIC SHOCK [None]
  - VOMITING [None]
  - WHITE BLOOD CELL COUNT INCREASED [None]
